FAERS Safety Report 21105892 (Version 1)
Quarter: 2022Q3

REPORT INFORMATION
  Report Type: Spontaneous
  Country: CN (occurrence: CN)
  Receive Date: 20220720
  Receipt Date: 20220720
  Transmission Date: 20221027
  Serious: Yes (Other)
  Sender: FDA-Public Use
  Company Number: CN-009507513-2207CHN004598

PATIENT
  Age: 60 Year
  Sex: Male

DRUGS (5)
  1. KEYTRUDA [Suspect]
     Active Substance: PEMBROLIZUMAB
     Indication: Adenocarcinoma gastric
     Dosage: 200 MG, CYCLICAL, DAY 1
     Dates: start: 2019
  2. CATEQUENTINIB [Suspect]
     Active Substance: CATEQUENTINIB
     Indication: Adenocarcinoma gastric
     Dosage: 12 MILLIGRAM, CYCLICAL, DAY 1-14
     Dates: start: 2019, end: 2019
  3. CATEQUENTINIB [Suspect]
     Active Substance: CATEQUENTINIB
     Dosage: 12 MILLIGRAM, CYCLICAL, 2 DOSES EVERY 3 DAYS
     Dates: start: 2019
  4. HERCEPTIN [Suspect]
     Active Substance: TRASTUZUMAB
     Indication: Adenocarcinoma gastric
     Dosage: 440 MILLIGRAM, CYCLICAL, DAY 1
     Dates: start: 2019
  5. PALBOCICLIB [Concomitant]
     Active Substance: PALBOCICLIB
     Indication: Adenocarcinoma gastric
     Dosage: 125 MILLIGRAM, CYCLICAL, DAY 1-21
     Dates: start: 2019, end: 2019

REACTIONS (4)
  - Neuropathy peripheral [Unknown]
  - Drug interaction [Unknown]
  - Stomatitis [Recovering/Resolving]
  - Product use in unapproved indication [Unknown]

NARRATIVE: CASE EVENT DATE: 20190101
